FAERS Safety Report 7672405-7 (Version None)
Quarter: 2011Q3

REPORT INFORMATION
  Report Type: 
  Country: None (occurrence: None)
  Receive Date: 20110809
  Receipt Date: 20110803
  Transmission Date: 20111222
  Serious: Yes (Hospitalization)
  Sender: FDA-Public Use
  Company Number: GB-MERCK-1108GBR00032

PATIENT
  Age: 82 Year
  Sex: Female
  Weight: 50 kg

DRUGS (7)
  1. FOSAMAX [Suspect]
     Route: 048
     Dates: start: 20110725
  2. SUCRALFATE [Concomitant]
     Route: 065
     Dates: start: 20110720
  3. GLICLAZIDE [Concomitant]
     Route: 065
     Dates: start: 20110720
  4. BENDROFLUMETHIAZIDE [Concomitant]
     Route: 065
     Dates: start: 20110720
  5. NICORANDIL [Concomitant]
     Route: 065
     Dates: start: 20110720
  6. PROCHLORPERAZINE [Concomitant]
     Route: 065
     Dates: start: 20110630, end: 20110720
  7. OMEPRAZOLE [Concomitant]
     Route: 065
     Dates: start: 20110719

REACTIONS (2)
  - GASTRIC ULCER HAEMORRHAGE [None]
  - MELAENA [None]
